FAERS Safety Report 8332810-2 (Version None)
Quarter: 2012Q2

REPORT INFORMATION
  Report Type: 
  Country: None (occurrence: None)
  Receive Date: 20120503
  Receipt Date: 20120426
  Transmission Date: 20120825
  Serious: Yes (Life-Threatening, Hospitalization)
  Sender: FDA-Public Use
  Company Number: DE-UCBSA-033008

PATIENT
  Age: 78 Year
  Sex: Female
  Weight: 51 kg

DRUGS (16)
  1. PREDNISOLONE [Concomitant]
     Dates: start: 20110226, end: 20110304
  2. PREDNISOLONE [Concomitant]
     Dates: start: 20110219, end: 20110225
  3. FOLIC ACID [Concomitant]
     Indication: RHEUMATOID ARTHRITIS
     Dosage: 5 MG QS (SUFFICIENT QUANTITY)
     Dates: start: 20040422, end: 20110323
  4. METHOTREXATE [Concomitant]
     Dates: start: 20040422, end: 20101008
  5. PREDNISOLONE [Concomitant]
     Dates: start: 20110211, end: 20110218
  6. CERTOLIZUMAB PEGOL [Suspect]
     Route: 058
     Dates: start: 20100827, end: 20100924
  7. METHOTREXATE [Concomitant]
     Dosage: 20 MG QS (SUFFICIENT QUANTITY)
     Dates: start: 20101009, end: 20110323
  8. ALENDRONIC ACID [Concomitant]
     Indication: OSTEOPOROSIS
     Dosage: 70 MG QS
     Dates: start: 20100730
  9. PREDNISOLONE [Concomitant]
     Dates: start: 20110305, end: 20110311
  10. METHOTREXATE [Concomitant]
     Indication: RHEUMATOID ARTHRITIS
     Dosage: QS (SUFFICIENT QUANTITY)
     Dates: start: 20040104, end: 20040421
  11. ENOXAPARIN [Concomitant]
     Indication: THROMBOSIS PROPHYLAXIS
     Dates: start: 20110323
  12. CERTOLIZUMAB PEGOL [Suspect]
     Indication: RHEUMATOID ARTHRITIS
     Route: 058
     Dates: start: 20100924
  13. CELEBREX [Concomitant]
     Indication: RHEUMATOID ARTHRITIS
     Dates: start: 20110218
  14. PREDNISOLONE [Concomitant]
     Indication: RHEUMATOID ARTHRITIS
     Dates: start: 20040422, end: 20110210
  15. PREDNISOLONE [Concomitant]
     Dates: start: 20110312
  16. DEKRISTOL [Concomitant]
     Indication: OSTEOPOROSIS
     Dosage: QS
     Dates: start: 20100730

REACTIONS (3)
  - TACHYARRHYTHMIA [None]
  - PULMONARY TUBERCULOSIS [None]
  - RHEUMATOID ARTHRITIS [None]
